FAERS Safety Report 8712280 (Version 2)
Quarter: 2012Q4

REPORT INFORMATION
  Report Type: 
  Country: US (occurrence: US)
  Receive Date: 20120808
  Receipt Date: 20120923
  Transmission Date: 20130627
  Serious: Yes (Other)
  Sender: FDA-Public Use
  Company Number: US-BIOGENIDEC-2012BI028106

PATIENT
  Age: 38 Year
  Sex: Female

DRUGS (6)
  1. AVONEX [Suspect]
     Indication: MULTIPLE SCLEROSIS
     Route: 030
     Dates: start: 20000901, end: 2003
  2. AVONEX [Suspect]
     Indication: MULTIPLE SCLEROSIS
     Route: 030
     Dates: start: 2003
  3. AVONEX [Suspect]
     Indication: MULTIPLE SCLEROSIS
     Route: 030
     Dates: start: 200403
  4. MOBIC [Concomitant]
  5. MEDROL [Concomitant]
  6. FORTEO INJECTION [Concomitant]

REACTIONS (7)
  - Hip arthroplasty [Unknown]
  - Ankylosing spondylitis [Unknown]
  - Nerve compression [Unknown]
  - Polyarthritis [Not Recovered/Not Resolved]
  - Osteoporotic fracture [Recovered/Resolved]
  - Osteoporosis [Not Recovered/Not Resolved]
  - Fatigue [Not Recovered/Not Resolved]
